FAERS Safety Report 5838249-3 (Version None)
Quarter: 2008Q3

REPORT INFORMATION
  Report Type: 
  Country: None (occurrence: None)
  Receive Date: 20080808
  Receipt Date: 20080729
  Transmission Date: 20090109
  Serious: Yes (Death, Hospitalization, Other)
  Sender: FDA-Public Use
  Company Number: US-AVENTIS-200810573US

PATIENT
  Sex: Female
  Weight: 68.5 kg

DRUGS (10)
  1. TAXOTERE [Suspect]
     Indication: BREAST CANCER
     Dates: start: 20070404, end: 20070718
  2. DOXORUBICIN HCL [Suspect]
     Indication: BREAST CANCER
     Dosage: DOSE: UNK, 6 CYCLE
     Dates: start: 20070401, end: 20070701
  3. CYCLOPHOSPHAMIDE [Suspect]
     Indication: BREAST CANCER
     Dosage: DOSE: UNK, 6 CYCLE
     Dates: start: 20070401, end: 20070701
  4. ALOXI [Concomitant]
     Dosage: DOSE: UNK
  5. ZOFRAN [Concomitant]
     Dosage: DOSE: UNK
  6. KYTRIL                             /01178101/ [Concomitant]
     Dosage: DOSE: UNK
  7. DECADRON [Concomitant]
     Dosage: DOSE: UNK
  8. NEULASTA [Concomitant]
     Dosage: DOSE: UNK
  9. AMBIEN [Concomitant]
     Dosage: DOSE: UNK
  10. EMEND [Concomitant]
     Dosage: DOSE: UNK

REACTIONS (8)
  - ASCITES [None]
  - DEATH [None]
  - DYSPNOEA [None]
  - GENERALISED OEDEMA [None]
  - HEPATIC FIBROSIS [None]
  - NEUTROPENIA [None]
  - OEDEMA PERIPHERAL [None]
  - PLEURAL EFFUSION [None]
